FAERS Safety Report 25676105 (Version 1)
Quarter: 2025Q3

REPORT INFORMATION
  Report Type: Spontaneous
  Country: US (occurrence: US)
  Receive Date: 20250813
  Receipt Date: 20250813
  Transmission Date: 20251021
  Serious: Yes (Other)
  Sender: FRESENIUS KABI
  Company Number: US-FreseniusKabi-FK202511289

PATIENT
  Age: 34 Year
  Sex: Male

DRUGS (2)
  1. CISPLATIN [Suspect]
     Active Substance: CISPLATIN
     Indication: Neoadjuvant therapy
  2. DOXORUBICIN [Concomitant]
     Active Substance: DOXORUBICIN
     Indication: Neoadjuvant therapy
     Route: 042

REACTIONS (1)
  - Acute kidney injury [Unknown]
